FAERS Safety Report 15995298 (Version 1)
Quarter: 2019Q1

REPORT INFORMATION
  Report Type: Spontaneous
  Country: FR (occurrence: FR)
  Receive Date: 20190222
  Receipt Date: 20190222
  Transmission Date: 20190418
  Serious: Yes (Other)
  Sender: FDA-Public Use
  Company Number: FR-ABBVIE-19S-056-2670628-00

PATIENT
  Age: 80 Year
  Sex: Male

DRUGS (2)
  1. SINEMET [Suspect]
     Active Substance: CARBIDOPA\LEVODOPA
     Indication: MULTIPLE SYSTEM ATROPHY
     Dosage: UNK
     Route: 048
  2. DUODOPA [Suspect]
     Active Substance: CARBIDOPA\LEVODOPA
     Indication: MULTIPLE SYSTEM ATROPHY
     Dosage: UNK
     Route: 050
     Dates: start: 20181104

REACTIONS (5)
  - Multiple system atrophy [Unknown]
  - Drooling [Recovered/Resolved]
  - Product substitution issue [Unknown]
  - Apathy [Recovering/Resolving]
  - Product availability issue [Unknown]
